FAERS Safety Report 24719682 (Version 1)
Quarter: 2024Q4

REPORT INFORMATION
  Report Type: Spontaneous
  Country: US (occurrence: US)
  Receive Date: 20241211
  Receipt Date: 20241211
  Transmission Date: 20250114
  Serious: No
  Sender: ROCHE
  Company Number: US-ROCHE-10000151164

PATIENT
  Age: 5 Year
  Sex: Male

DRUGS (1)
  1. HEMLIBRA [Suspect]
     Active Substance: EMICIZUMAB-KXWH
     Indication: Factor VIII deficiency
     Dosage: STRENGTH- 30MG/ML
     Route: 058
     Dates: start: 201906

REACTIONS (3)
  - Lip haemorrhage [Unknown]
  - Haemorrhage [Unknown]
  - Nail injury [Unknown]

NARRATIVE: CASE EVENT DATE: 20241116
